FAERS Safety Report 13341602 (Version 1)
Quarter: 2017Q1

REPORT INFORMATION
  Report Type: Spontaneous
  Country: US (occurrence: US)
  Receive Date: 20170316
  Receipt Date: 20170316
  Transmission Date: 20170428
  Serious: No
  Sender: FDA-Public Use
  Company Number: US-ROCHE-1857629

PATIENT
  Age: 61 Year
  Sex: Male

DRUGS (2)
  1. ERIVEDGE [Suspect]
     Active Substance: VISMODEGIB
     Indication: ILL-DEFINED DISORDER
     Route: 048
     Dates: start: 20160820
  2. ERIVEDGE [Suspect]
     Active Substance: VISMODEGIB
     Route: 048
     Dates: start: 20160729

REACTIONS (5)
  - Back pain [Unknown]
  - Muscle spasms [Unknown]
  - Pain [Unknown]
  - Muscle spasms [Unknown]
  - Madarosis [Unknown]

NARRATIVE: CASE EVENT DATE: 20161201
